FAERS Safety Report 11202390 (Version 2)
Quarter: 2015Q3

REPORT INFORMATION
  Report Type: Report from Study
  Country: US (occurrence: US)
  Receive Date: 20150619
  Receipt Date: 20150904
  Transmission Date: 20151125
  Serious: Yes (Death, Other)
  Sender: FDA-Public Use
  Company Number: US-GILEAD-2015-0159143

PATIENT
  Age: 58 Year
  Sex: Male

DRUGS (3)
  1. AMBRISENTAN [Suspect]
     Active Substance: AMBRISENTAN
     Indication: PULMONARY ARTERIAL HYPERTENSION
     Dosage: 10 MG, QD
     Route: 065
     Dates: start: 20091001
  2. WARFARIN [Concomitant]
     Active Substance: WARFARIN
  3. VELETRI [Concomitant]
     Active Substance: EPOPROSTENOL

REACTIONS (2)
  - Acute kidney injury [Fatal]
  - Pulmonary arterial hypertension [Fatal]
